FAERS Safety Report 15814876 (Version 1)
Quarter: 2019Q1

REPORT INFORMATION
  Report Type: Spontaneous
  Country: ES (occurrence: ES)
  Receive Date: 20190111
  Receipt Date: 20190111
  Transmission Date: 20190417
  Serious: Yes (Other)
  Sender: FDA-Public Use
  Company Number: ES-ACCORD-101807

PATIENT
  Age: 24 Year
  Sex: Female

DRUGS (1)
  1. AMITRIPTYLINE [Suspect]
     Active Substance: AMITRIPTYLINE
     Indication: ANXIETY
     Dosage: 10 MG 1 TIMES A DAY FOR 11 DAYS
     Route: 048
     Dates: start: 20170801, end: 20170811

REACTIONS (1)
  - Hallucination, auditory [Recovered/Resolved]

NARRATIVE: CASE EVENT DATE: 20170803
